FAERS Safety Report 6171329-4 (Version None)
Quarter: 2009Q2

REPORT INFORMATION
  Report Type: 
  Country: None (occurrence: None)
  Receive Date: 20090428
  Receipt Date: 20090428
  Transmission Date: 20091009
  Serious: No
  Sender: FDA-Public Use
  Company Number: None

PATIENT
  Age: 44 Year
  Sex: Male
  Weight: 66 kg

DRUGS (1)
  1. PROPECIA [Suspect]
     Indication: ALOPECIA
     Dosage: 1 MG ONCE A DAY PO
     Route: 048
     Dates: start: 20090318, end: 20090417

REACTIONS (3)
  - APATHY [None]
  - LIBIDO DECREASED [None]
  - MOOD ALTERED [None]
